FAERS Safety Report 8311764-9 (Version None)
Quarter: 2012Q1

REPORT INFORMATION
  Report Type: 
  Country: None (occurrence: None)
  Receive Date: 20120315
  Receipt Date: 20110321
  Transmission Date: 20120608
  Serious: No
  Sender: FDA-Public Use
  Company Number: PHHY2011US14680

PATIENT
  Age: 46 Year
  Sex: Male
  Weight: 113 kg

DRUGS (23)
  1. BROMELIN (AMYLASE, BROMELAINS, GLUCOSE OXIDASE, INVERTASE, RIBONUCLEAS [Concomitant]
  2. MODAFINIL [Concomitant]
  3. SERTRALINE HYDROCHLORIDE [Concomitant]
  4. TREXIMET [Concomitant]
  5. DURAGESIC-100 [Concomitant]
  6. BUTORPHANOL (BUTORPHANOL) [Concomitant]
  7. VITAMIN D [Concomitant]
  8. SODIUM CHLORIDE 0.9% [Concomitant]
  9. POTASSIUM CHLORIDE [Concomitant]
  10. SCOPOLAMINE [Concomitant]
  11. NAPRELAN [Concomitant]
  12. GILENYA [Suspect]
     Indication: MULTIPLE SCLEROSIS
     Dosage: 0.5 MG, QD, ORAL
     Route: 048
     Dates: start: 20110216
  13. MECLIZINE [Concomitant]
  14. DIAZEPAM [Concomitant]
  15. EPA-DHA CAPSULE [Concomitant]
  16. LECITHIN (LECITHIN) CAPSULE [Concomitant]
  17. ZOCOR [Concomitant]
  18. AMITRIPTYLINE HCL [Concomitant]
  19. BACLOFEN [Concomitant]
  20. VICODIN [Concomitant]
  21. TYSABRI [Concomitant]
  22. B COMPLEX (NICOTINAMIDE, PYRIDOXINE HYDROCHLORIDE, RIBOFLAVIN, THIAMIN [Concomitant]
  23. MAGNESIUM OXIDE (MAGNESIUM OXIDE) [Concomitant]

REACTIONS (1)
  - NAUSEA [None]
